FAERS Safety Report 9088925 (Version 1)
Quarter: 2013Q1

REPORT INFORMATION
  Report Type: Spontaneous
  Country: US (occurrence: US)
  Receive Date: 20130201
  Receipt Date: 20130201
  Transmission Date: 20140127
  Serious: Yes (Other)
  Sender: FDA-Public Use
  Company Number: CHPA2013US001717

PATIENT
  Age: 56 Year
  Sex: Female

DRUGS (3)
  1. EXCEDRIN ES BACK + BODY [Suspect]
     Indication: SPINAL PAIN
     Dosage: 2 DF, PRN
     Route: 048
     Dates: start: 2007, end: 201201
  2. EXCEDRIN MIGRAINE [Suspect]
     Indication: MIGRAINE
     Dosage: UNK, UNK
     Route: 048
     Dates: end: 2005
  3. NEURONTIN [Concomitant]
     Dosage: UNK, UNK
     Dates: start: 1998

REACTIONS (2)
  - Hiatus hernia [Not Recovered/Not Resolved]
  - Dyspepsia [Not Recovered/Not Resolved]
